FAERS Safety Report 11804689 (Version 1)
Quarter: 2015Q4

REPORT INFORMATION
  Report Type: Spontaneous
  Country: JP (occurrence: JP)
  Receive Date: 20151205
  Receipt Date: 20151205
  Transmission Date: 20160305
  Serious: Yes (Hospitalization)
  Sender: FDA-Public Use
  Company Number: JP-AMGEN-JPNOT2015098000

PATIENT
  Age: 77 Year
  Sex: Male
  Weight: 43 kg

DRUGS (16)
  1. CAMPTO [Suspect]
     Active Substance: IRINOTECAN
     Dosage: UNK UNK, Q2WEEKS
     Route: 041
     Dates: start: 20150818
  2. DECADRON                           /00016002/ [Concomitant]
     Active Substance: DEXAMETHASONE
     Dosage: 9.9 MG, UNK
     Route: 050
     Dates: start: 20150721
  3. CAMPTO [Suspect]
     Active Substance: IRINOTECAN
     Indication: COLON CANCER
     Dosage: UNK, Q2WEEKS
     Route: 041
     Dates: start: 20140731
  4. ACINON                             /00867001/ [Concomitant]
     Dosage: 150 MG, BID
     Route: 048
     Dates: start: 2013
  5. 5-FU                               /00098801/ [Suspect]
     Active Substance: FLUOROURACIL
     Indication: COLON CANCER
     Dosage: UNK, Q2WEEKS
     Route: 042
     Dates: start: 20140731
  6. 5-FU                               /00098801/ [Suspect]
     Active Substance: FLUOROURACIL
     Dosage: UNK UNK, Q2WEEKS
     Route: 042
     Dates: start: 20150818
  7. TARIVID                            /00731801/ [Concomitant]
     Active Substance: OFLOXACIN
     Dosage: UNK, BID
     Route: 001
     Dates: start: 201503
  8. CAMPTO [Suspect]
     Active Substance: IRINOTECAN
     Dosage: 210 MG, Q2WEEKS
     Route: 041
     Dates: start: 20150721, end: 20150721
  9. VECTIBIX [Suspect]
     Active Substance: PANITUMUMAB
     Indication: COLON CANCER
     Dosage: 257 MG, Q2WEEKS
     Route: 041
     Dates: start: 20140731, end: 20150721
  10. 5-FU                               /00098801/ [Suspect]
     Active Substance: FLUOROURACIL
     Dosage: 560 MG, Q2WEEKS
     Route: 040
     Dates: start: 20150721, end: 20150721
  11. CALCIUM LEVOFOLINATE [Suspect]
     Active Substance: LEVOLEUCOVORIN CALCIUM
     Indication: COLON CANCER
     Dosage: UNK, Q2WEEKS
     Route: 041
     Dates: start: 20140731
  12. CALCIUM LEVOFOLINATE [Suspect]
     Active Substance: LEVOLEUCOVORIN CALCIUM
     Dosage: UNK UNK, Q2WEEKS
     Route: 041
     Dates: start: 20150818
  13. GRANISETRON                        /01178102/ [Concomitant]
     Active Substance: GRANISETRON
     Dosage: 100 ML, UNK
     Route: 050
     Dates: start: 20150721
  14. HYALEIN [Concomitant]
     Active Substance: HYALURONATE SODIUM
     Dosage: UNK, QD
     Route: 047
     Dates: start: 201503
  15. CALCIUM LEVOFOLINATE [Suspect]
     Active Substance: LEVOLEUCOVORIN CALCIUM
     Dosage: 280 MG, Q2WEEKS
     Route: 041
     Dates: start: 20150721, end: 20150721
  16. HIRUDOID                           /00723701/ [Concomitant]
     Dosage: UNK
     Route: 062
     Dates: start: 201402

REACTIONS (5)
  - Decreased appetite [Not Recovered/Not Resolved]
  - Diarrhoea [Unknown]
  - Malaise [Not Recovered/Not Resolved]
  - Skin disorder [Unknown]
  - Hypomagnesaemia [Not Recovered/Not Resolved]

NARRATIVE: CASE EVENT DATE: 20150806
